FAERS Safety Report 22060567 (Version 2)
Quarter: 2023Q1

REPORT INFORMATION
  Report Type: Spontaneous
  Country: TW (occurrence: TW)
  Receive Date: 20230303
  Receipt Date: 20230310
  Transmission Date: 20230417
  Serious: Yes (Hospitalization, Other)
  Sender: FDA-Public Use
  Company Number: TW-PFIZER INC-202300089003

PATIENT
  Age: 69 Year
  Sex: Male

DRUGS (1)
  1. SPIRONOLACTONE [Suspect]
     Active Substance: SPIRONOLACTONE
     Dosage: UNK

REACTIONS (10)
  - Cerebral small vessel ischaemic disease [Unknown]
  - Asthenia [Unknown]
  - Decreased appetite [Unknown]
  - Taste disorder [Unknown]
  - Weight decreased [Unknown]
  - Gait disturbance [Unknown]
  - Choking [Unknown]
  - Cardiac amyloidosis [Unknown]
  - Amyloidosis senile [Unknown]
  - Respiratory rate decreased [Unknown]

NARRATIVE: CASE EVENT DATE: 20220201
